FAERS Safety Report 4717607-4 (Version None)
Quarter: 2005Q3

REPORT INFORMATION
  Report Type: 
  Country: None (occurrence: None)
  Receive Date: 20050712
  Receipt Date: 20050329
  Transmission Date: 20060218
  Serious: No
  Sender: FDA-Public Use
  Company Number: 2005S1000053

PATIENT
  Age: 60 Year
  Sex: Female

DRUGS (29)
  1. CUBICIN [Suspect]
     Indication: BILOMA
     Dosage: 450 MG;Q48H;IV
     Route: 042
     Dates: start: 20040818
  2. CUBICIN [Suspect]
     Indication: BACTERIAL INFECTION
     Dosage: 320 MG;Q24H;IV
     Route: 042
     Dates: start: 20040423, end: 20040503
  3. ACYCLOVIR [Concomitant]
  4. ALBUMIN (HUMAN) [Concomitant]
  5. DARBEPOETIN [Concomitant]
  6. DOCUSATE [Concomitant]
  7. FERROUS SULFATE TAB [Concomitant]
  8. FLUCONAZOLE [Concomitant]
  9. HEPARIN [Concomitant]
  10. HYDROMORPHONE HCL [Concomitant]
  11. POTASSIUM CHLORIDE [Concomitant]
  12. LEVOFLOXACIN [Concomitant]
  13. LINEZOLID [Concomitant]
  14. MAGNESIUM OXIDE [Concomitant]
  15. MAGNESIUM SULFATE [Concomitant]
  16. CEFEPIME [Concomitant]
  17. METOPROLOL [Concomitant]
  18. SODIUM PHOSPHATE [Concomitant]
  19. NYSTATIN [Concomitant]
  20. PANTOPRAZOLE [Concomitant]
  21. PERCOCET [Concomitant]
  22. ZOSYN [Concomitant]
  23. SIMETHICONE [Concomitant]
  24. SODIUM BICARBONATE [Concomitant]
  25. TACROLIMUS [Concomitant]
  26. URSODIOL [Concomitant]
  27. VANCOMYCIN [Concomitant]
  28. PHYTONADIONE [Concomitant]
  29. WARFARIN [Concomitant]

REACTIONS (1)
  - INTERNATIONAL NORMALISED RATIO INCREASED [None]
